FAERS Safety Report 18093142 (Version 3)
Quarter: 2020Q3

REPORT INFORMATION
  Report Type: Spontaneous
  Country: DE (occurrence: DE)
  Receive Date: 20200730
  Receipt Date: 20200814
  Transmission Date: 20201103
  Serious: Yes (Hospitalization)
  Sender: FDA-Public Use
  Company Number: DE-UNITED THERAPEUTICS-UNT-2020-011136

PATIENT

DRUGS (2)
  1. REMODULIN [Suspect]
     Active Substance: TREPROSTINIL
     Indication: PULMONARY ARTERIAL HYPERTENSION
     Dosage: UNK, CONTINUING
     Route: 058
     Dates: start: 20200130
  2. REMODULIN [Suspect]
     Active Substance: TREPROSTINIL
     Dosage: 0.0303 ?G/KG, CONTINUING
     Route: 058

REACTIONS (4)
  - Haemoglobin decreased [Recovered/Resolved]
  - Vitamin B12 deficiency [Unknown]
  - Dyspnoea [Recovered/Resolved]
  - Folate deficiency [Unknown]

NARRATIVE: CASE EVENT DATE: 2020
